FAERS Safety Report 25188734 (Version 2)
Quarter: 2025Q2

REPORT INFORMATION
  Report Type: Report from Study
  Country: US (occurrence: US)
  Receive Date: 20250411
  Receipt Date: 20250530
  Transmission Date: 20250716
  Serious: Yes (Other)
  Sender: BIOVITRUM
  Company Number: US-BIOVITRUM-2025-US-004010

PATIENT
  Age: 60 Year
  Sex: Male

DRUGS (1)
  1. DOPTELET [Suspect]
     Active Substance: AVATROMBOPAG MALEATE
     Indication: Thrombocytopenia
     Route: 048
     Dates: start: 20250315

REACTIONS (4)
  - Colitis ulcerative [Unknown]
  - Thrombocytopenia [Recovering/Resolving]
  - Drug effect less than expected [Unknown]
  - Insurance issue [Unknown]
